FAERS Safety Report 9753516 (Version 2)
Quarter: 2013Q4

REPORT INFORMATION
  Report Type: Spontaneous
  Country: FR (occurrence: FR)
  Receive Date: 20131213
  Receipt Date: 20131213
  Transmission Date: 20140711
  Serious: Yes (Death, Hospitalization)
  Sender: FDA-Public Use
  Company Number: FR-ASTRAZENECA-2013SE87847

PATIENT
  Age: 32880 Day
  Sex: Female

DRUGS (11)
  1. MERONEM [Suspect]
     Indication: URINARY TRACT INFECTION
     Route: 041
     Dates: start: 20130701, end: 20130711
  2. AUGMENTIN [Suspect]
     Indication: URINARY TRACT INFECTION
     Route: 048
     Dates: start: 20130621, end: 20130701
  3. OFLOCET [Suspect]
     Indication: URINARY TRACT INFECTION
     Route: 048
     Dates: start: 20130624, end: 20130701
  4. AMIKACINE [Suspect]
     Indication: URINARY TRACT INFECTION
     Route: 041
     Dates: start: 20130701, end: 20130701
  5. TRIFLUCAN [Suspect]
     Indication: OESOPHAGEAL CANDIDIASIS
     Route: 048
     Dates: start: 20130621, end: 20130711
  6. ISOPTINE [Concomitant]
     Indication: HYPERTROPHIC CARDIOMYOPATHY
     Route: 048
  7. CACIT VITAMINE D3 [Concomitant]
     Route: 048
  8. DEDROGYL [Concomitant]
     Dosage: 15 MG/100 ML, 5 DROPS AT MORNING QD
     Route: 048
  9. DOLIPRANE [Concomitant]
     Dosage: 500 MG, 2 DF ON DEMAND
     Route: 048
  10. INEXIUM [Concomitant]
     Indication: OESOPHAGEAL CANDIDIASIS
     Route: 048
     Dates: start: 20130621
  11. FURADANTINE [Concomitant]
     Indication: URINARY TRACT INFECTION
     Dates: start: 20130608, end: 20130614

REACTIONS (4)
  - Death [Fatal]
  - Cholestasis [Recovering/Resolving]
  - Therapy cessation [Unknown]
  - Hepatocellular injury [Recovering/Resolving]
